FAERS Safety Report 7777130-X (Version None)
Quarter: 2011Q3

REPORT INFORMATION
  Report Type: 
  Country: None (occurrence: None)
  Receive Date: 20110926
  Receipt Date: 20110919
  Transmission Date: 20111222
  Serious: Yes (Hospitalization, Other)
  Sender: FDA-Public Use
  Company Number: FR-BRISTOL-MYERS SQUIBB COMPANY-16074999

PATIENT
  Age: 91 Year
  Sex: Male

DRUGS (3)
  1. CORDARONE [Interacting]
     Route: 048
     Dates: start: 20110701
  2. COUMADIN [Suspect]
     Route: 048
     Dates: start: 20110701, end: 20110812
  3. ASPIRIN [Concomitant]
     Route: 048

REACTIONS (5)
  - RENAL FAILURE ACUTE [None]
  - FALL [None]
  - HAEMATOMA [None]
  - DRUG INTERACTION [None]
  - INTERNATIONAL NORMALISED RATIO INCREASED [None]
